FAERS Safety Report 7584598-0 (Version None)
Quarter: 2011Q2

REPORT INFORMATION
  Report Type: 
  Country: None (occurrence: None)
  Receive Date: 20110630
  Receipt Date: 20110622
  Transmission Date: 20111010
  Serious: Yes (Hospitalization)
  Sender: FDA-Public Use
  Company Number: US-US-EMD SERONO, INC.-7064947

PATIENT
  Sex: Female
  Weight: 67 kg

DRUGS (6)
  1. REBIF [Suspect]
  2. LORCET-HD [Concomitant]
  3. SERTRALINE [Concomitant]
     Indication: DEPRESSION
  4. PIMECROLIMUS CREAM [Concomitant]
     Indication: PSORIASIS
  5. REBIF [Suspect]
     Indication: RELAPSING-REMITTING MULTIPLE SCLEROSIS
     Dates: start: 20100527, end: 20101201
  6. LEVOTHYROXINE SODIUM [Concomitant]

REACTIONS (1)
  - STAPHYLOCOCCAL ABSCESS [None]
